FAERS Safety Report 12560715 (Version 1)
Quarter: 2016Q3

REPORT INFORMATION
  Report Type: Spontaneous
  Country: IT (occurrence: IT)
  Receive Date: 20160715
  Receipt Date: 20160715
  Transmission Date: 20161109
  Serious: Yes (Hospitalization)
  Sender: FDA-Public Use
  Company Number: IT-ROCHE-1794933

PATIENT
  Age: 58 Year
  Sex: Male
  Weight: 71 kg

DRUGS (4)
  1. ALDACTONE (ITALY) [Concomitant]
     Indication: ASCITES
     Dosage: ^25 MG HARD CAPSULES^ 16 CAPSULES PERIOD: 6 MONTHS
     Route: 048
  2. HARVONI [Suspect]
     Active Substance: LEDIPASVIR\SOFOSBUVIR
     Indication: HEPATITIS C
     Dosage: 90 MG / 400 MG - FILM-COATED TABLETS
     Route: 048
     Dates: start: 20151028, end: 20151116
  3. RIBAVIRIN. [Suspect]
     Active Substance: RIBAVIRIN
     Indication: HEPATITIS C
     Route: 048
     Dates: start: 20151028, end: 20151118
  4. INDERAL [Concomitant]
     Active Substance: PROPRANOLOL HYDROCHLORIDE
     Indication: PORTAL HYPERTENSION
     Dosage: PERIOD: 6 MONTHS
     Route: 048

REACTIONS (4)
  - Cryoglobulinaemia [Recovering/Resolving]
  - Proteinuria [Recovering/Resolving]
  - Purpura [Recovering/Resolving]
  - Nephrotic syndrome [Recovering/Resolving]

NARRATIVE: CASE EVENT DATE: 20151116
